FAERS Safety Report 21781270 (Version 1)
Quarter: 2022Q4

REPORT INFORMATION
  Report Type: Spontaneous
  Country: US (occurrence: US)
  Receive Date: 20221227
  Receipt Date: 20221227
  Transmission Date: 20230113
  Serious: No
  Sender: FDA-Public Use
  Company Number: US-BAUSCH-BL-2022-027413

PATIENT
  Age: 52 Year
  Sex: Female

DRUGS (1)
  1. RETIN-A [Suspect]
     Active Substance: TRETINOIN
     Indication: Skin disorder
     Dosage: RETIN-A CREAM APPLIED ONCE TO THE AFFECTED AREAS AT BEDTIME
     Route: 061

REACTIONS (2)
  - Product colour issue [Unknown]
  - Therapeutic product effect decreased [Unknown]
